FAERS Safety Report 7283746 (Version 6)
Quarter: 2013Q4

REPORT INFORMATION
  Report Type: Spontaneous
  Country: US (occurrence: US)
  Receive Date: 20100218
  Receipt Date: 20131107
  Transmission Date: 20140711
  Serious: Yes (Hospitalization)
  Sender: FDA-Public Use
  Company Number: US-BAYER-201013948NA

PATIENT
  Age: 20 Year
  Sex: Female
  Weight: 52.27 kg

DRUGS (8)
  1. YAZ [Suspect]
     Route: 048
     Dates: start: 200704, end: 200806
  2. YASMIN [Suspect]
     Route: 048
     Dates: start: 200704, end: 200806
  3. PROTONIX [Concomitant]
     Dosage: 40 MG, UNK
     Route: 048
  4. ONDANSETRON [Concomitant]
     Dosage: 4 MG, UNK
     Route: 048
  5. NEXIUM [Concomitant]
     Dosage: 40 MG, UNK
     Route: 048
     Dates: start: 20090429, end: 20090608
  6. POTASSIUM [Concomitant]
     Route: 048
  7. MULTIVITAMIN [Concomitant]
     Route: 048
  8. VITAMIN B12 [Concomitant]
     Route: 048

REACTIONS (3)
  - Cholecystectomy [Unknown]
  - Biliary dyskinesia [None]
  - Cholecystitis [None]
